FAERS Safety Report 7028683-0 (Version None)
Quarter: 2010Q4

REPORT INFORMATION
  Report Type: 
  Country: None (occurrence: None)
  Receive Date: 20101004
  Receipt Date: 20101004
  Transmission Date: 20110411
  Serious: No
  Sender: FDA-Public Use
  Company Number: None

PATIENT
  Age: 34 Year
  Sex: Female
  Weight: 58.9676 kg

DRUGS (1)
  1. REGLAN [Suspect]
     Dosage: 5 MG 4 TIMES PER DAY PO
     Route: 048

REACTIONS (6)
  - ANXIETY [None]
  - FEELING ABNORMAL [None]
  - FEELING COLD [None]
  - IRRITABILITY [None]
  - NERVOUS SYSTEM DISORDER [None]
  - RESTLESSNESS [None]
